FAERS Safety Report 14304514 (Version 1)
Quarter: 2017Q4

REPORT INFORMATION
  Report Type: Report from Study
  Country: JP (occurrence: JP)
  Receive Date: 20171219
  Receipt Date: 20171219
  Transmission Date: 20180321
  Serious: Yes (Other)
  Sender: FDA-Public Use
  Company Number: JP-OTSUKA-JP-2012-10611

PATIENT
  Age: 38 Year
  Sex: Female
  Weight: 63 kg

DRUGS (17)
  1. SEROQUEL [Concomitant]
     Active Substance: QUETIAPINE FUMARATE
  2. PARULEON [Concomitant]
     Active Substance: TRIAZOLAM
  3. TRIAZOLAM. [Concomitant]
     Active Substance: TRIAZOLAM
  4. QUETIAPINE. [Concomitant]
     Active Substance: QUETIAPINE
  5. SENNA [Concomitant]
     Active Substance: SENNA LEAF\SENNOSIDES\SENNOSIDES A AND B
  6. CLONAZEPAM. [Concomitant]
     Active Substance: CLONAZEPAM
  7. ARIPIPRAZOLE. [Suspect]
     Active Substance: ARIPIPRAZOLE
     Indication: SCHIZOPHRENIA
     Dosage: 6 MG, QD
     Route: 048
     Dates: start: 20081219, end: 20090511
  8. RIVOTRIL [Concomitant]
     Active Substance: CLONAZEPAM
  9. SENNOSIDE [Concomitant]
     Active Substance: SENNOSIDES
  10. DEPAKENE [Concomitant]
     Active Substance: VALPROIC ACID
  11. FLUNITRAZEPAM [Concomitant]
     Active Substance: FLUNITRAZEPAM
  12. FLUNITRAZEPAM [Concomitant]
     Active Substance: FLUNITRAZEPAM
  13. FERROUS SULFATE. [Concomitant]
     Active Substance: FERROUS SULFATE
  14. FERROUS SULFATE. [Concomitant]
     Active Substance: FERROUS SULFATE
  15. ARIPIPRAZOLE. [Suspect]
     Active Substance: ARIPIPRAZOLE
     Dosage: 12 MG, QD
     Route: 048
     Dates: start: 20090512, end: 20090515
  16. ARIPIPRAZOLE. [Suspect]
     Active Substance: ARIPIPRAZOLE
     Dosage: 6 MG, QD
     Route: 048
     Dates: start: 20090516
  17. BENZALIN [Concomitant]
     Active Substance: NITRAZEPAM

REACTIONS (1)
  - Meige^s syndrome [Unknown]

NARRATIVE: CASE EVENT DATE: 20090515
